FAERS Safety Report 14938166 (Version 2)
Quarter: 2018Q3

REPORT INFORMATION
  Report Type: Spontaneous
  Country: US (occurrence: US)
  Receive Date: 20180525
  Receipt Date: 20180702
  Transmission Date: 20181010
  Serious: No
  Sender: FDA-Public Use
  Company Number: US-ASTRAZENECA-2018SE65522

PATIENT
  Age: 26099 Day
  Sex: Female
  Weight: 92.5 kg

DRUGS (5)
  1. INSULIN [Concomitant]
     Active Substance: INSULIN NOS
  2. SYMBICORT [Suspect]
     Active Substance: BUDESONIDE\FORMOTEROL FUMARATE DIHYDRATE
     Indication: ASTHMA
     Dosage: 80/4.5 MG, TWO INHALATIONS, TWO TIMES A DAY
     Route: 055
  3. XOLAIR [Concomitant]
     Active Substance: OMALIZUMAB
  4. SYMBICORT [Suspect]
     Active Substance: BUDESONIDE\FORMOTEROL FUMARATE DIHYDRATE
     Indication: ASTHMA
     Dosage: 80/4.5 MG, TWO INHALATIONS, TWO TIMES A DAY
     Route: 055
  5. DALIRESP [Suspect]
     Active Substance: ROFLUMILAST
     Route: 048

REACTIONS (13)
  - Chest pain [Unknown]
  - Feeling abnormal [Unknown]
  - Weight increased [Unknown]
  - Rheumatoid arthritis [Not Recovered/Not Resolved]
  - Influenza [Not Recovered/Not Resolved]
  - Diarrhoea [Not Recovered/Not Resolved]
  - Candida infection [Recovered/Resolved with Sequelae]
  - Tachycardia [Not Recovered/Not Resolved]
  - Tremor [Unknown]
  - Abdominal pain upper [Not Recovered/Not Resolved]
  - Dry mouth [Not Recovered/Not Resolved]
  - Tongue disorder [Not Recovered/Not Resolved]
  - Food poisoning [Unknown]

NARRATIVE: CASE EVENT DATE: 20180515
